FAERS Safety Report 21225983 (Version 6)
Quarter: 2022Q4

REPORT INFORMATION
  Report Type: Report from Study
  Country: None (occurrence: ES)
  Receive Date: 20220818
  Receipt Date: 20221129
  Transmission Date: 20230112
  Serious: Yes (Other)
  Sender: FDA-Public Use
  Company Number: ES-AKCEA THERAPEUTICS, INC.-2022IS003899

PATIENT
  Age: 68 Year
  Sex: Female

DRUGS (4)
  1. TEGSEDI [Suspect]
     Active Substance: INOTERSEN SODIUM
     Indication: Hereditary neuropathic amyloidosis
     Route: 058
     Dates: start: 20200417, end: 20220729
  2. DEVICE [Suspect]
     Active Substance: DEVICE
  3. TEGSEDI [Suspect]
     Active Substance: INOTERSEN SODIUM
     Route: 058
     Dates: start: 20220417
  4. ALPRAZOLAM [Concomitant]
     Active Substance: ALPRAZOLAM
     Route: 065
     Dates: start: 20220820

REACTIONS (43)
  - SARS-CoV-2 test positive [Recovered/Resolved]
  - Malaise [Recovered/Resolved]
  - Chest pain [Unknown]
  - Diarrhoea [Unknown]
  - Decreased appetite [Unknown]
  - Eye inflammation [Recovered/Resolved]
  - Cataract [Recovered/Resolved]
  - Anxiety [Unknown]
  - Weight decreased [Unknown]
  - Red blood cell count decreased [Unknown]
  - Mean cell volume increased [Unknown]
  - Blood creatinine increased [Unknown]
  - Irritability [Unknown]
  - Haemoglobin decreased [Unknown]
  - Haematocrit decreased [Unknown]
  - Blood lactate dehydrogenase increased [Unknown]
  - Blood potassium increased [Unknown]
  - Blood cholesterol increased [Unknown]
  - Blood triglycerides increased [Unknown]
  - Low density lipoprotein increased [Recovered/Resolved]
  - Total cholesterol/HDL ratio abnormal [Unknown]
  - Prealbumin decreased [Unknown]
  - Microalbuminuria [Unknown]
  - Albumin urine present [Unknown]
  - Blood bilirubin decreased [Unknown]
  - Depression [Recovering/Resolving]
  - Urine protein/creatinine ratio increased [Unknown]
  - Blood urea increased [Recovered/Resolved]
  - Hypotension [Recovered/Resolved]
  - Mean cell haemoglobin concentration decreased [Unknown]
  - Nasopharyngitis [Recovered/Resolved]
  - Flushing [Recovered/Resolved]
  - Nervousness [Recovering/Resolving]
  - Eye disorder [Recovered/Resolved]
  - Fatigue [Recovered/Resolved]
  - Blood glucose increased [Recovered/Resolved]
  - Mental status changes [Recovering/Resolving]
  - Feeling abnormal [Unknown]
  - Serum ferritin increased [Unknown]
  - Urine leukocyte esterase positive [Unknown]
  - Diabetic nephropathy [Unknown]
  - Nasopharyngitis [Recovering/Resolving]
  - Discomfort [Recovering/Resolving]

NARRATIVE: CASE EVENT DATE: 20220614
